FAERS Safety Report 7544857-4 (Version None)
Quarter: 2011Q2

REPORT INFORMATION
  Report Type: 
  Country: None (occurrence: None)
  Receive Date: 20110614
  Receipt Date: 20110126
  Transmission Date: 20111010
  Serious: Yes (Hospitalization, Other)
  Sender: FDA-Public Use
  Company Number: US-BAYER-200930579NA

PATIENT
  Age: 25 Year
  Sex: Female
  Weight: 58.503 kg

DRUGS (8)
  1. VACCINES [Concomitant]
     Dosage: GARDESIL INJECTION OR IMMUNIZATION ONE MONTH PRIOR TO THE THROMBOTIC EVENT
  2. YAZ [Suspect]
     Indication: CONTRACEPTION
     Dosage: DISPENSED BY PHRARMACY ON: 19-JUN-2008
     Dates: start: 20080701, end: 20080701
  3. KARIVA [Concomitant]
     Dosage: DISPENSED BY PHARMACY ON:27-JUL-2007, 16-AUG-2007,10-SEP-2007,08-OCT-2007,14-NOV-2007,15-DEC-2007,
     Dates: start: 20070801, end: 20080101
  4. ORTHO TRI-CYCLEN [Concomitant]
     Dosage: DRUG DISPENSED FROM PHARMACY ON 13-MAR-2006, 30-MAY-2006, 27-JUN-2006
     Dates: start: 20060313
  5. VIRAL VACCINES [Concomitant]
     Dosage: GARDESIL INJECTION OR IMMUNIZATION ONE MONTH PRIOR TO THE THROMBOTIC EVENT
  6. OVCON-35 [Concomitant]
     Dosage: DISPENSED BY PHARMACY ON 20-JUL-2006
     Dates: start: 20060720
  7. YAZ [Suspect]
     Indication: ACNE
  8. BALZIVA [Concomitant]
     Dosage: DISPENSED: 15-AUG-2006, 13-SEP-2006, 13-OCT-2006, 11-NOV-2006, 09-DEC-2006, 11-JAN-2007, 24-MAY-2007
     Dates: start: 20060815

REACTIONS (13)
  - PLEURAL EFFUSION [None]
  - ATELECTASIS [None]
  - PLEURITIC PAIN [None]
  - PULMONARY EMBOLISM [None]
  - PULMONARY INFARCTION [None]
  - PLEURISY [None]
  - MENTAL DISORDER [None]
  - PAIN [None]
  - CHEST PAIN [None]
  - DYSPNOEA [None]
  - TRICUSPID VALVE INCOMPETENCE [None]
  - PULMONARY VALVE INCOMPETENCE [None]
  - TACHYCARDIA [None]
